FAERS Safety Report 19306967 (Version 1)
Quarter: 2021Q2

REPORT INFORMATION
  Report Type: Spontaneous
  Country: GB (occurrence: GB)
  Receive Date: 20210526
  Receipt Date: 20210526
  Transmission Date: 20210717
  Serious: Yes (Other)
  Sender: FDA-Public Use
  Company Number: GB-TEVA-2021-GB-1914809

PATIENT
  Sex: Male

DRUGS (4)
  1. SODIUM VALPROATE [Suspect]
     Active Substance: VALPROATE SODIUM
     Indication: BRAIN STEM GLIOMA
     Dosage: 28.8 MG/ML (3 CYCLES), INFUSION IN THE PONS
     Route: 050
  2. SODIUM VALPROATE [Suspect]
     Active Substance: VALPROATE SODIUM
     Dosage: 21.6 MG/ML (1 CYCLE), INFUSION IN THE PONS
     Route: 050
  3. CARBOPLATIN. [Suspect]
     Active Substance: CARBOPLATIN
     Indication: BRAIN STEM GLIOMA
     Dosage: 0.18 MG/ML (5 CYCLES) IN COMBINATION WITH SODIUM VALPROATE
     Route: 050
  4. SODIUM VALPROATE [Suspect]
     Active Substance: VALPROATE SODIUM
     Dosage: 14.4 MG/ML (5 CYCLES) IN COMBINATION WITH CARBOPLATIN
     Route: 050

REACTIONS (4)
  - VIth nerve paralysis [Not Recovered/Not Resolved]
  - Off label use [Unknown]
  - Headache [Recovered/Resolved]
  - Hemiparesis [Recovered/Resolved]
